FAERS Safety Report 4929251-4 (Version None)
Quarter: 2006Q1

REPORT INFORMATION
  Report Type: 
  Country: None (occurrence: None)
  Receive Date: 20060223
  Receipt Date: 20060213
  Transmission Date: 20060701
  Serious: Yes (Hospitalization)
  Sender: FDA-Public Use
  Company Number: 2005BI020499

PATIENT
  Age: 77 Year
  Sex: Female
  Weight: 60.3284 kg

DRUGS (18)
  1. ZEVALIN [Suspect]
     Indication: NON-HODGKIN'S LYMPHOMA
     Dosage: X1; IV
     Route: 042
     Dates: start: 20050901, end: 20050901
  2. ZEVALIN [Suspect]
     Indication: NON-HODGKIN'S LYMPHOMA
     Dosage: 27.5 MCI;X1;IV
     Route: 042
     Dates: start: 20050920, end: 20050920
  3. AMARYL [Concomitant]
  4. ATROVENT [Concomitant]
  5. LASIX [Concomitant]
  6. PREVACID [Concomitant]
  7. CARTIA XT [Concomitant]
  8. DIGITEK [Concomitant]
  9. WARFARIN SODIUM [Concomitant]
  10. SOTALOL HCL [Concomitant]
  11. ZYRTEC [Concomitant]
  12. FLOVENT [Concomitant]
  13. LIPITOR [Concomitant]
  14. MIRALAX [Concomitant]
  15. CITRUCEL [Concomitant]
  16. PROCRIT [Concomitant]
  17. NEUPOGEN [Concomitant]
  18. POSTASSIUM CHLORIDE [Concomitant]

REACTIONS (13)
  - ABDOMINAL PAIN [None]
  - ABDOMINAL WALL INFECTION [None]
  - DEPRESSION [None]
  - DISEASE RECURRENCE [None]
  - ELECTROCARDIOGRAM ABNORMAL [None]
  - HAEMATOMA INFECTION [None]
  - INCISION SITE COMPLICATION [None]
  - PANCYTOPENIA [None]
  - PNEUMONIA [None]
  - PURULENT DISCHARGE [None]
  - SUBCUTANEOUS NODULE [None]
  - UROSEPSIS [None]
  - WOUND INFECTION STAPHYLOCOCCAL [None]
